FAERS Safety Report 7480198-1 (Version None)
Quarter: 2011Q2

REPORT INFORMATION
  Report Type: 
  Country: None (occurrence: None)
  Receive Date: 20110516
  Receipt Date: 20110506
  Transmission Date: 20111010
  Serious: No
  Sender: FDA-Public Use
  Company Number: US-BIOGENIDEC-2011BI017410

PATIENT
  Age: 49 Year
  Sex: Male

DRUGS (2)
  1. TYSABRI [Suspect]
     Indication: MULTIPLE SCLEROSIS
     Route: 042
     Dates: start: 20090803
  2. BENADRYL [Concomitant]
     Indication: PREMEDICATION

REACTIONS (3)
  - PRURITUS [None]
  - MEMORY IMPAIRMENT [None]
  - CHEST DISCOMFORT [None]
